FAERS Safety Report 13097725 (Version 1)
Quarter: 2017Q1

REPORT INFORMATION
  Report Type: Spontaneous
  Country: FR (occurrence: FR)
  Receive Date: 20170109
  Receipt Date: 20170109
  Transmission Date: 20170428
  Serious: Yes (Hospitalization)
  Sender: FDA-Public Use
  Company Number: FR-ABBVIE-17P-056-1833389-00

PATIENT
  Sex: Male

DRUGS (4)
  1. DEPAKINE [Suspect]
     Active Substance: VALPROATE SODIUM
     Indication: EPILEPSY
     Route: 048
  2. DEPAKINE [Suspect]
     Active Substance: VALPROATE SODIUM
     Dosage: 3 TABLETS MORNING AND EVENING
     Route: 048
  3. KEPPRA [Suspect]
     Active Substance: LEVETIRACETAM
     Indication: EPILEPSY
     Route: 048
  4. KEPPRA [Suspect]
     Active Substance: LEVETIRACETAM
     Route: 048
     Dates: start: 20161216

REACTIONS (2)
  - Toxicity to various agents [Recovered/Resolved]
  - Altered state of consciousness [Recovered/Resolved]

NARRATIVE: CASE EVENT DATE: 20161211
